FAERS Safety Report 6444308-7 (Version None)
Quarter: 2009Q4

REPORT INFORMATION
  Report Type: 
  Country: None (occurrence: None)
  Receive Date: 20091118
  Receipt Date: 20091106
  Transmission Date: 20100525
  Serious: Yes (Other)
  Sender: FDA-Public Use
  Company Number: PHHY2009JP48880

PATIENT
  Age: 86 Year
  Sex: Male

DRUGS (2)
  1. TEGRETOL [Suspect]
     Dosage: 200 MG DAILY
     Route: 048
  2. RISPERDAL [Concomitant]
     Route: 048

REACTIONS (1)
  - BRADYCARDIA [None]
